FAERS Safety Report 6626197-0 (Version None)
Quarter: 2010Q1

REPORT INFORMATION
  Report Type: 
  Country: None (occurrence: None)
  Receive Date: 20100310
  Receipt Date: 20100305
  Transmission Date: 20100710
  Serious: Yes (Life-Threatening, Hospitalization)
  Sender: FDA-Public Use
  Company Number: TW-ASTRAZENECA-2010SE09691

PATIENT
  Age: 77 Year
  Sex: Male
  Weight: 54 kg

DRUGS (1)
  1. ZOLADEX [Suspect]
     Indication: PROSTATE CANCER
     Route: 058
     Dates: start: 20091209

REACTIONS (2)
  - ABDOMINAL INJURY [None]
  - INJECTION SITE HAEMATOMA [None]
